FAERS Safety Report 9753891 (Version 2)
Quarter: 2013Q4

REPORT INFORMATION
  Report Type: Spontaneous
  Country: US (occurrence: US)
  Receive Date: 20131213
  Receipt Date: 20131213
  Transmission Date: 20140711
  Serious: No
  Sender: FDA-Public Use
  Company Number: US-GILEAD-2010-0027521

PATIENT
  Sex: Female
  Weight: 64.86 kg

DRUGS (24)
  1. LETAIRIS [Suspect]
     Indication: PULMONARY ARTERIAL HYPERTENSION
     Route: 048
     Dates: start: 20090415, end: 20100303
  2. REVATIO [Concomitant]
  3. PRINIVIL [Concomitant]
  4. ALDACTONE [Concomitant]
  5. LANOXIN [Concomitant]
  6. LASIX [Concomitant]
  7. HYDROCHLOROTHIAZIDE [Concomitant]
  8. ISENTRESS [Concomitant]
  9. INTELENCE [Concomitant]
  10. NORVIR [Concomitant]
  11. TRUVADA [Concomitant]
  12. PREZISTA [Concomitant]
  13. GLIPIZIDE [Concomitant]
  14. CHANTIX [Concomitant]
  15. SINGULAIR [Concomitant]
  16. PROVENTIL [Concomitant]
  17. NASONEX [Concomitant]
  18. ZITHROMAX [Concomitant]
  19. SEROQUEL [Concomitant]
  20. LEXAPRO [Concomitant]
  21. BACTRIM DS [Concomitant]
  22. TYLENOL [Concomitant]
  23. MULTIVITAMIN [Concomitant]
  24. SENNA [Concomitant]

REACTIONS (1)
  - Liver function test abnormal [Unknown]
